FAERS Safety Report 8995803 (Version 1)
Quarter: 2013Q1

REPORT INFORMATION
  Report Type: Spontaneous
  Country: IT (occurrence: IT)
  Receive Date: 20130103
  Receipt Date: 20130103
  Transmission Date: 20140127
  Serious: Yes (Other)
  Sender: FDA-Public Use
  Company Number: IT-MYLANLABS-2012S1026209

PATIENT
  Age: 54 Year
  Sex: Female

DRUGS (2)
  1. LEVETIRACETAM [Suspect]
     Indication: PRODUCT USED FOR UNKNOWN INDICATION
     Dosage: 1500MG IN THE MORNING, 1500 MG IN THE EVENING
     Route: 048
     Dates: start: 20121217
  2. LEVETIRACETAM [Suspect]
     Indication: PRODUCT USED FOR UNKNOWN INDICATION
     Dosage: 1500 MG IN THE MORNING, 2000 MG IN THE EVENING
     Route: 048
     Dates: end: 20121220

REACTIONS (2)
  - Convulsion [Not Recovered/Not Resolved]
  - Product substitution issue [Not Recovered/Not Resolved]
